FAERS Safety Report 5866813-4 (Version None)
Quarter: 2008Q3

REPORT INFORMATION
  Report Type: 
  Country: None (occurrence: None)
  Receive Date: 20080828
  Receipt Date: 20080828
  Transmission Date: 20090109
  Serious: Yes (Life-Threatening, Other)
  Sender: FDA-Public Use
  Company Number: None

PATIENT
  Age: 57 Year
  Sex: Male
  Weight: 115.6672 kg

DRUGS (1)
  1. DIGOXIN [Suspect]
     Indication: HEART RATE IRREGULAR
     Dosage: 0.125 MG. TABLET 1 EVERY OTHER DAY PO
     Route: 048
     Dates: start: 20080823, end: 20080823

REACTIONS (12)
  - ABDOMINAL PAIN UPPER [None]
  - ABNORMAL BEHAVIOUR [None]
  - CONFUSIONAL STATE [None]
  - DEPRESSION [None]
  - DYSARTHRIA [None]
  - EYE PAIN [None]
  - FEELING ABNORMAL [None]
  - HEADACHE [None]
  - HEARING IMPAIRED [None]
  - SLEEP DISORDER [None]
  - SPEECH DISORDER [None]
  - VISUAL IMPAIRMENT [None]
